FAERS Safety Report 21245672 (Version 1)
Quarter: 2022Q3

REPORT INFORMATION
  Report Type: Spontaneous
  Country: US (occurrence: None)
  Receive Date: 20220824
  Receipt Date: 20220824
  Transmission Date: 20221027
  Serious: Yes (Hospitalization)
  Sender: FDA-Public Use
  Company Number: US-Emmaus Medical, Inc.-EMM202203-000037

PATIENT
  Age: 42 Year
  Sex: Male

DRUGS (2)
  1. ENDARI [Suspect]
     Active Substance: GLUTAMINE
     Indication: Haemochromatosis
     Dosage: 5 G
     Route: 048
     Dates: start: 20180525
  2. ENDARI [Suspect]
     Active Substance: GLUTAMINE
     Indication: Chronic kidney disease

REACTIONS (3)
  - Sickle cell anaemia with crisis [Unknown]
  - Product dose omission issue [Unknown]
  - Product use in unapproved indication [Unknown]

NARRATIVE: CASE EVENT DATE: 20220126
